FAERS Safety Report 7192044-4 (Version None)
Quarter: 2010Q4

REPORT INFORMATION
  Report Type: 
  Country: None (occurrence: None)
  Receive Date: 20101223
  Receipt Date: 20101220
  Transmission Date: 20110411
  Serious: Yes (Other)
  Sender: FDA-Public Use
  Company Number: DE-US-EMD SERONO, INC.-7032969

PATIENT
  Sex: Female

DRUGS (3)
  1. REBIF [Suspect]
     Indication: MULTIPLE SCLEROSIS
     Dates: start: 20050404
  2. 2 MEDICAL PRODUCTS FOR BLOOD PRESSURE [Concomitant]
  3. 2 MEDICAL PRODUCTS FOR MUSCLE RELAXATION [Concomitant]

REACTIONS (2)
  - AUTOIMMUNE THYROIDITIS [None]
  - WHITE BLOOD CELL COUNT DECREASED [None]
